FAERS Safety Report 15594241 (Version 2)
Quarter: 2019Q2

REPORT INFORMATION
  Report Type: Spontaneous
  Country: US (occurrence: US)
  Receive Date: 20181106
  Receipt Date: 20190423
  Transmission Date: 20190711
  Serious: No
  Sender: FDA-Public Use
  Company Number: US-PFIZER INC-2018137980

PATIENT
  Age: 14 Year
  Sex: Male

DRUGS (2)
  1. GENOTROPIN [Suspect]
     Active Substance: SOMATROPIN
     Dosage: 2.7 MG, DAILY
     Dates: start: 201611
  2. GENOTROPIN [Suspect]
     Active Substance: SOMATROPIN
     Dosage: 2.8 MG, DAILY
     Dates: start: 20061120

REACTIONS (3)
  - Blood thyroid stimulating hormone decreased [Unknown]
  - Product prescribing error [Unknown]
  - Thyroxine increased [Unknown]

NARRATIVE: CASE EVENT DATE: 20170630
